FAERS Safety Report 7299559-9 (Version None)
Quarter: 2011Q1

REPORT INFORMATION
  Report Type: 
  Country: None (occurrence: None)
  Receive Date: 20110217
  Receipt Date: 20110211
  Transmission Date: 20110831
  Serious: Yes (Other)
  Sender: FDA-Public Use
  Company Number: GB-PFIZER INC-2010178981

PATIENT
  Sex: Female

DRUGS (1)
  1. EFFEXOR XR [Suspect]

REACTIONS (1)
  - GASTRIC BANDING [None]
